FAERS Safety Report 17431249 (Version 1)
Quarter: 2020Q1

REPORT INFORMATION
  Report Type: Spontaneous
  Country: US (occurrence: US)
  Receive Date: 20200218
  Receipt Date: 20200218
  Transmission Date: 20200409
  Serious: No
  Sender: FDA-Public Use
  Company Number: US-BAUSCH-BL-2020-002876

PATIENT
  Age: 80 Year
  Sex: Male
  Weight: 77.18 kg

DRUGS (2)
  1. TIMOLOL MALEATE OPHTHALMIC SOLUTION USP 0.5% [Suspect]
     Active Substance: TIMOLOL MALEATE
     Dosage: ONE DROP IN EACH EYE ONCE EVERY MORNING
     Route: 047
     Dates: start: 202001, end: 202001
  2. TIMOLOL MALEATE OPHTHALMIC SOLUTION USP 0.5% [Suspect]
     Active Substance: TIMOLOL MALEATE
     Indication: GLAUCOMA
     Dosage: ONE DROP IN EACH EYE ONCE EVERY MORNING, ABOUT FIVE YEARS AGO PRIOR TO THE DATE OF INITIAL REPORT
     Route: 047

REACTIONS (3)
  - Eye irritation [Recovered/Resolved]
  - Product quality issue [Unknown]
  - Product physical consistency issue [Unknown]

NARRATIVE: CASE EVENT DATE: 202001
